FAERS Safety Report 6923075-4 (Version None)
Quarter: 2010Q3

REPORT INFORMATION
  Report Type: 
  Country: None (occurrence: None)
  Receive Date: 20100813
  Receipt Date: 20100805
  Transmission Date: 20110219
  Serious: Yes (Other)
  Sender: FDA-Public Use
  Company Number: PH-PFIZER INC-2010099011

PATIENT
  Age: 47 Year
  Sex: Male

DRUGS (2)
  1. NORVASC [Suspect]
     Dosage: 10 MG, 1X/DAY
     Dates: start: 20040101
  2. ASCORBIC ACID [Concomitant]
     Dosage: UNK

REACTIONS (5)
  - CEREBROVASCULAR ACCIDENT [None]
  - DIPLOPIA [None]
  - HYPOAESTHESIA FACIAL [None]
  - MALAISE [None]
  - VOMITING [None]
